FAERS Safety Report 8063217-3 (Version None)
Quarter: 2012Q1

REPORT INFORMATION
  Report Type: 
  Country: None (occurrence: None)
  Receive Date: 20120123
  Receipt Date: 20120119
  Transmission Date: 20120608
  Serious: Yes (Death, Hospitalization)
  Sender: FDA-Public Use
  Company Number: PHHY2012CA001248

PATIENT
  Sex: Female

DRUGS (1)
  1. CLOZARIL [Suspect]
     Dates: start: 20090821, end: 20111201

REACTIONS (12)
  - SEPTIC SHOCK [None]
  - UROSEPSIS [None]
  - URINARY TRACT INFECTION [None]
  - SEPSIS [None]
  - DIABETES MELLITUS [None]
  - INFECTION [None]
  - HYPOVENTILATION [None]
  - HYPOXIA [None]
  - DYSPNOEA [None]
  - BRAIN STEM INFARCTION [None]
  - CEREBROVASCULAR ACCIDENT [None]
  - RESPIRATORY DEPRESSION [None]
